FAERS Safety Report 9514938 (Version 1)
Quarter: 2013Q3

REPORT INFORMATION
  Report Type: Spontaneous
  Country: DE (occurrence: DE)
  Receive Date: 20130911
  Receipt Date: 20130911
  Transmission Date: 20140515
  Serious: Yes (Hospitalization)
  Sender: FDA-Public Use
  Company Number: DE-ASTRAZENECA-2013SE67625

PATIENT
  Age: 74 Year
  Sex: Female
  Weight: 70 kg

DRUGS (4)
  1. BRILIQUE [Suspect]
     Indication: ACUTE MYOCARDIAL INFARCTION
     Dosage: 2X1
     Route: 048
     Dates: start: 20121201, end: 20130716
  2. ASS [Concomitant]
  3. SIMVASTATIN [Concomitant]
  4. BISOPROLOL [Concomitant]

REACTIONS (2)
  - Venous thrombosis [Unknown]
  - Muscle haemorrhage [Unknown]
